FAERS Safety Report 6385207-9 (Version None)
Quarter: 2009Q4

REPORT INFORMATION
  Report Type: 
  Country: None (occurrence: None)
  Receive Date: 20091002
  Receipt Date: 20080801
  Transmission Date: 20100525
  Serious: No
  Sender: FDA-Public Use
  Company Number: US-ASTRAZENECA-2008UW15274

PATIENT
  Age: 78 Year
  Sex: Female
  Weight: 63.5 kg

DRUGS (6)
  1. ARIMIDEX [Suspect]
     Indication: BREAST CANCER
     Dosage: 1 MG
     Route: 048
     Dates: start: 20040101
  2. THYROID TAB [Concomitant]
  3. ALLEGRA [Concomitant]
  4. TOPROL-XL [Concomitant]
  5. ZETIA [Concomitant]
  6. MYSOLINE [Concomitant]

REACTIONS (1)
  - DRY SKIN [None]
